FAERS Safety Report 13679920 (Version 1)
Quarter: 2017Q2

REPORT INFORMATION
  Report Type: Spontaneous
  Country: CH (occurrence: CH)
  Receive Date: 20170622
  Receipt Date: 20170622
  Transmission Date: 20170830
  Serious: Yes (Other)
  Sender: FDA-Public Use
  Company Number: CH-ABBVIE-17P-151-2006516-00

PATIENT
  Sex: Male

DRUGS (1)
  1. CHIROCAINE [Suspect]
     Active Substance: LEVOBUPIVACAINE HYDROCHLORIDE
     Indication: LOCAL ANAESTHESIA
     Dosage: 280MG/24H
     Route: 065
     Dates: start: 2013, end: 2013

REACTIONS (4)
  - Compartment syndrome [Unknown]
  - Motor dysfunction [Unknown]
  - Lumbar spinal stenosis [Unknown]
  - Sensory loss [Unknown]

NARRATIVE: CASE EVENT DATE: 2014
